FAERS Safety Report 21925287 (Version 1)
Quarter: 2023Q1

REPORT INFORMATION
  Report Type: Report from Study
  Country: CA (occurrence: CA)
  Receive Date: 20230130
  Receipt Date: 20230130
  Transmission Date: 20230417
  Serious: Yes (Death)
  Sender: FDA-Public Use
  Company Number: CA-BAYER-2023A010041

PATIENT
  Age: 81 Year
  Sex: Male

DRUGS (10)
  1. ADEMPAS [Suspect]
     Active Substance: RIOCIGUAT
     Indication: Pulmonary hypertension
     Dosage: 2.5 MG, TID
     Dates: start: 20220321, end: 20230124
  2. TAMSULOSIN [Concomitant]
     Active Substance: TAMSULOSIN
  3. K+10 [Concomitant]
  4. XARELTO [Concomitant]
     Active Substance: RIVAROXABAN
  5. PANADOL [Concomitant]
     Active Substance: ACETAMINOPHEN
  6. FUROSEMIDE [Concomitant]
     Active Substance: FUROSEMIDE
  7. PANTOPRAZOLE [Concomitant]
     Active Substance: PANTOPRAZOLE
  8. ATORVASTATIN [Concomitant]
     Active Substance: ATORVASTATIN
  9. BICALUTAMIDE [Concomitant]
     Active Substance: BICALUTAMIDE
  10. ASCORBIC ACID [Concomitant]
     Active Substance: ASCORBIC ACID

REACTIONS (1)
  - Death [Fatal]
